FAERS Safety Report 8785038 (Version 1)
Quarter: 2012Q4

REPORT INFORMATION
  Report Type: 
  Country: US (occurrence: US)
  Receive Date: 20120914
  Receipt Date: 20120914
  Transmission Date: 20130627
  Serious: No
  Sender: FDA-Public Use
  Company Number: US-ASTRAZENECA-2012SE65794

PATIENT
  Age: 52 Year
  Sex: Female

DRUGS (4)
  1. CRESTOR [Suspect]
     Route: 048
  2. SEROQUEL [Suspect]
     Indication: BIPOLAR DISORDER
     Route: 048
  3. SEROQUEL [Suspect]
     Indication: DEPRESSION
     Route: 048
  4. SEROQUEL [Suspect]
     Indication: POST-TRAUMATIC STRESS DISORDER
     Route: 048

REACTIONS (6)
  - Disturbance in attention [Unknown]
  - Hallucination [Unknown]
  - Malaise [Unknown]
  - Insomnia [Unknown]
  - Tremor [Unknown]
  - Drug dose omission [Unknown]
